FAERS Safety Report 7641578-4 (Version None)
Quarter: 2011Q3

REPORT INFORMATION
  Report Type: 
  Country: None (occurrence: None)
  Receive Date: 20110727
  Receipt Date: 20110727
  Transmission Date: 20111222
  Serious: Yes (Hospitalization, Other)
  Sender: FDA-Public Use
  Company Number: None

PATIENT
  Sex: Female
  Weight: 66.8 kg

DRUGS (1)
  1. BONIVA [Suspect]

REACTIONS (3)
  - MYALGIA [None]
  - DIARRHOEA [None]
  - INFLAMMATION [None]
